FAERS Safety Report 4316465-X (Version None)
Quarter: 2004Q1

REPORT INFORMATION
  Report Type: 
  Country: None (occurrence: None)
  Receive Date: 20040311
  Receipt Date: 20040303
  Transmission Date: 20041129
  Serious: Yes (Hospitalization, Disabling, Other)
  Sender: FDA-Public Use
  Company Number: GB-JNJFOC-20040105574

PATIENT
  Age: 73 Year
  Sex: Female
  Weight: 80 kg

DRUGS (7)
  1. DURAGESIC [Suspect]
     Indication: ANALGESIC EFFECT
     Dosage: 175 UG/HR, 1 IN 3 DAY, TRANSDERMAL
     Route: 062
     Dates: start: 20031029, end: 20040111
  2. VENLAFAXINE [Concomitant]
  3. RABERPRAZOLE (ALL OTHER THERAPEUTIC PRODUCTS) [Concomitant]
  4. LORAZEPAM [Concomitant]
  5. LETROZOLE [Concomitant]
  6. RISPERIDONE [Concomitant]
  7. LACTULOSE [Concomitant]

REACTIONS (7)
  - AGITATION [None]
  - ANXIETY [None]
  - CONFUSIONAL STATE [None]
  - DELIRIUM [None]
  - HALLUCINATION [None]
  - PARANOIA [None]
  - TEARFULNESS [None]
